FAERS Safety Report 25530144 (Version 1)
Quarter: 2025Q3

REPORT INFORMATION
  Report Type: Spontaneous
  Country: US (occurrence: US)
  Receive Date: 20250708
  Receipt Date: 20250708
  Transmission Date: 20251021
  Serious: Yes (Other)
  Sender: EVOFEM
  Company Number: US-EVOFEM BIOSCIENCES, INC.-2025-EVO-US000014

PATIENT

DRUGS (1)
  1. PHEXXI [Suspect]
     Active Substance: CITRIC ACID MONOHYDRATE\LACTIC ACID, L-\POTASSIUM BITARTRATE
     Indication: Product used for unknown indication
     Route: 065

REACTIONS (2)
  - Ectopic pregnancy [Unknown]
  - Drug ineffective [Unknown]
